FAERS Safety Report 7858018-2 (Version None)
Quarter: 2011Q4

REPORT INFORMATION
  Report Type: 
  Country: None (occurrence: None)
  Receive Date: 20111027
  Receipt Date: 20111014
  Transmission Date: 20120403
  Serious: Yes (Hospitalization)
  Sender: FDA-Public Use
  Company Number: US-BAYER-2011-027782

PATIENT
  Age: 23 Year
  Sex: Female

DRUGS (9)
  1. ASTHMA INHALER [Concomitant]
     Indication: ASTHMA
     Dosage: UNK
     Dates: start: 20030101
  2. LEVOTHYROXINE SODIUM [Concomitant]
     Indication: THYROID DISORDER
     Dosage: UNK UNK, CONT
  3. YASMIN [Suspect]
     Indication: CONTRACEPTION
     Dosage: UNK
     Dates: start: 20010101, end: 20050101
  4. DROSPIRENONE AND ETHINYL ESTRADIOL [Suspect]
     Indication: CONTRACEPTION
     Dosage: UNK
     Dates: start: 20010101, end: 20050101
  5. CELEXA [Concomitant]
     Indication: ANXIETY
  6. IBUPROFEN [Concomitant]
     Indication: MIGRAINE
     Dosage: UNK
     Dates: start: 20060101, end: 20070101
  7. VITAMIN D [Concomitant]
  8. VITAMIN B-12 [Concomitant]
     Indication: ASTHENIA
  9. YAZ [Suspect]
     Indication: CONTRACEPTION
     Dosage: UNK
     Dates: start: 20010101, end: 20050101

REACTIONS (7)
  - PAIN [None]
  - INJURY [None]
  - GALLBLADDER DISORDER [None]
  - ANXIETY [None]
  - ANHEDONIA [None]
  - EMOTIONAL DISTRESS [None]
  - GENERAL PHYSICAL HEALTH DETERIORATION [None]
